FAERS Safety Report 8191062-7 (Version None)
Quarter: 2012Q1

REPORT INFORMATION
  Report Type: 
  Country: None (occurrence: None)
  Receive Date: 20120307
  Receipt Date: 20120301
  Transmission Date: 20120608
  Serious: Yes (Other)
  Sender: FDA-Public Use
  Company Number: US-GLAXOSMITHKLINE-A0889214A

PATIENT
  Age: 55 Year
  Sex: Female
  Weight: 145.5 kg

DRUGS (5)
  1. TIAZAC [Concomitant]
  2. HYDROCHLOROTHIAZIDE [Concomitant]
  3. GLUCOVANCE [Concomitant]
  4. AVAPRO [Concomitant]
  5. AVANDIA [Suspect]
     Indication: TYPE 2 DIABETES MELLITUS
     Route: 048
     Dates: start: 20001001, end: 20080601

REACTIONS (2)
  - BUNDLE BRANCH BLOCK BILATERAL [None]
  - SINUS BRADYCARDIA [None]
